FAERS Safety Report 4938547-1 (Version None)
Quarter: 2006Q1

REPORT INFORMATION
  Report Type: 
  Country: None (occurrence: None)
  Receive Date: 20060309
  Receipt Date: 20060302
  Transmission Date: 20060701
  Serious: Yes (Other)
  Sender: FDA-Public Use
  Company Number: FR-AVENTIS-200610872FR

PATIENT
  Age: 67 Year
  Sex: Female

DRUGS (7)
  1. KETEK [Suspect]
     Indication: CHRONIC SINUSITIS
     Route: 048
     Dates: start: 20051228, end: 20060106
  2. KETEK [Suspect]
     Route: 048
     Dates: start: 20060111, end: 20060120
  3. KETEK [Suspect]
     Indication: BRONCHITIS
     Route: 048
     Dates: start: 20051228, end: 20060106
  4. KETEK [Suspect]
     Route: 048
     Dates: start: 20060111, end: 20060120
  5. FLIXONASE [Concomitant]
  6. MAGNESIUM [Concomitant]
  7. EFFERALGAN [Concomitant]
     Route: 048

REACTIONS (6)
  - CHILLS [None]
  - CHROMATURIA [None]
  - CONSTIPATION [None]
  - FATIGUE [None]
  - HEPATOCELLULAR DAMAGE [None]
  - PYREXIA [None]
